FAERS Safety Report 5393067-8 (Version None)
Quarter: 2007Q3

REPORT INFORMATION
  Report Type: 
  Country: None (occurrence: None)
  Receive Date: 20070719
  Receipt Date: 20061025
  Transmission Date: 20080115
  Serious: Yes (Other)
  Sender: FDA-Public Use
  Company Number: WAES 0610USA04392

PATIENT
  Age: 48 Year
  Sex: Female

DRUGS (2)
  1. ALENDRONATE SODIUM [Suspect]
     Indication: METASTASES TO BONE
     Dosage: 5 MG DAILY; PO
     Route: 048
     Dates: start: 20030401
  2. BISPHONAL [Concomitant]

REACTIONS (1)
  - OSTEONECROSIS [None]
